FAERS Safety Report 8654098 (Version 4)
Quarter: 2012Q4

REPORT INFORMATION
  Report Type: 
  Country: US (occurrence: US)
  Receive Date: 20120709
  Receipt Date: 20121022
  Transmission Date: 20130627
  Serious: Yes (Life-Threatening, Hospitalization, Other)
  Sender: FDA-Public Use
  Company Number: US-ASTELLAS-2012US005952

PATIENT
  Age: 80 Year
  Sex: Female

DRUGS (11)
  1. LEXISCAN [Suspect]
     Indication: PRODUCT USED FOR UNKNOWN INDICATION
     Dosage: UNK
     Route: 065
     Dates: start: 20120702, end: 20120702
  2. MYOVIEW [Suspect]
     Indication: PRODUCT USED FOR UNKNOWN INDICATION
     Dosage: UNK
     Route: 065
     Dates: start: 20120702, end: 20120702
  3. AMLODIPINE [Concomitant]
     Indication: PRODUCT USED FOR UNKNOWN INDICATION
     Dosage: 5 mg, UID/QD
     Route: 048
  4. CITALOPRAM [Concomitant]
     Indication: PRODUCT USED FOR UNKNOWN INDICATION
     Dosage: 20 mg, UID/QD
     Route: 048
  5. HYDROCHLOROTHIAZIDE [Concomitant]
     Indication: PRODUCT USED FOR UNKNOWN INDICATION
     Dosage: 25 mg, UID/QD
     Route: 048
  6. LOSARTAN [Concomitant]
     Indication: PRODUCT USED FOR UNKNOWN INDICATION
     Dosage: 50 mg, bid
     Route: 048
  7. METOPROLOL [Concomitant]
     Indication: PRODUCT USED FOR UNKNOWN INDICATION
     Dosage: 75 mg, bid
     Route: 048
  8. POTASSIUM CHLORIDE [Concomitant]
     Indication: PRODUCT USED FOR UNKNOWN INDICATION
     Dosage: 20 mEq, UID/QD
     Route: 048
  9. SIMVASTATIN [Concomitant]
     Indication: PRODUCT USED FOR UNKNOWN INDICATION
     Dosage: 20 mg, QHS
     Route: 048
  10. ASPIRIN [Concomitant]
     Indication: PRODUCT USED FOR UNKNOWN INDICATION
     Dosage: 81 mg, UID/QD
     Route: 048
  11. COLECALCIFEROL [Concomitant]
     Indication: PRODUCT USED FOR UNKNOWN INDICATION
     Dosage: 400 IU, UID/QD
     Route: 048

REACTIONS (14)
  - Respiratory failure [Recovering/Resolving]
  - Anaphylactic reaction [Unknown]
  - Bradycardia [Recovered/Resolved]
  - Angioedema [Recovering/Resolving]
  - Pneumonia [Recovered/Resolved]
  - Fracture [Recovered/Resolved]
  - Anaphylactic shock [Unknown]
  - Hypotension [Recovered/Resolved]
  - Chest pain [Recovered/Resolved]
  - Micturition urgency [Unknown]
  - Dysphagia [Recovered/Resolved]
  - Throat irritation [Unknown]
  - Diarrhoea [Recovered/Resolved]
  - Cardio-respiratory arrest [None]
